FAERS Safety Report 6252654-5 (Version None)
Quarter: 2009Q2

REPORT INFORMATION
  Report Type: 
  Country: None (occurrence: None)
  Receive Date: 20090629
  Receipt Date: 20090629
  Transmission Date: 20091009
  Serious: Yes (Hospitalization)
  Sender: FDA-Public Use
  Company Number: None

PATIENT
  Sex: Female
  Weight: 56.1 kg

DRUGS (3)
  1. CISPLATIN [Suspect]
     Dosage: 125 MG
  2. CISPLATIN [Suspect]
  3. ETOPOSIDE [Suspect]
     Dosage: 468 MG

REACTIONS (3)
  - CHOLECYSTITIS ACUTE [None]
  - DEHYDRATION [None]
  - PAIN [None]
